FAERS Safety Report 9822534 (Version 7)
Quarter: 2014Q1

REPORT INFORMATION
  Report Type: Report from Study
  Country: US (occurrence: US)
  Receive Date: 20140116
  Receipt Date: 20140211
  Transmission Date: 20141002
  Serious: Yes (Other)
  Sender: FDA-Public Use
  Company Number: US-TEVA-455836USA

PATIENT
  Age: 26 Year
  Sex: Female

DRUGS (5)
  1. CLARAVIS [Suspect]
     Dosage: 60 MILLIGRAM DAILY;
     Dates: start: 20130703, end: 20131210
  2. VITAMIN B12 [Concomitant]
     Dates: start: 2011
  3. BIOTIN [Concomitant]
     Dates: start: 2011
  4. OMEGA 3 [Concomitant]
     Dates: start: 2011
  5. MILK THISTLE [Concomitant]

REACTIONS (1)
  - Unintended pregnancy [Recovered/Resolved]
